FAERS Safety Report 16904659 (Version 1)
Quarter: 2019Q4

REPORT INFORMATION
  Report Type: Spontaneous
  Country: NL (occurrence: NL)
  Receive Date: 20191010
  Receipt Date: 20191010
  Transmission Date: 20200122
  Serious: Yes (Death)
  Sender: FDA-Public Use
  Company Number: NL-JNJFOC-20191009509

PATIENT
  Age: 64 Year
  Sex: Male

DRUGS (3)
  1. SPIRONOLACTONE. [Concomitant]
     Active Substance: SPIRONOLACTONE
     Indication: PORTAL HYPERTENSION
  2. FUROSEMIDE. [Concomitant]
     Active Substance: FUROSEMIDE
     Indication: PORTAL HYPERTENSION
     Route: 065
  3. RIVAROXABAN [Suspect]
     Active Substance: RIVAROXABAN
     Indication: PORTAL VEIN THROMBOSIS
     Dosage: 15 MG, BID
     Route: 048

REACTIONS (3)
  - Off label use [Unknown]
  - Product use in unapproved indication [Unknown]
  - Adenocarcinoma pancreas [Fatal]
